FAERS Safety Report 4885799-2 (Version None)
Quarter: 2006Q1

REPORT INFORMATION
  Report Type: 
  Country: None (occurrence: None)
  Receive Date: 20060117
  Receipt Date: 20051219
  Transmission Date: 20060701
  Serious: Yes (Death)
  Sender: FDA-Public Use
  Company Number: MK-051219-0000401

PATIENT
  Sex: Male

DRUGS (1)
  1. COSMEGEN [Suspect]
     Indication: RHABDOMYOSARCOMA
     Dosage: 1.5 MG/M**2; QD; INJ

REACTIONS (8)
  - ANAEMIA [None]
  - DRUG TOXICITY [None]
  - HEPATIC FAILURE [None]
  - HEPATOMEGALY [None]
  - INCORRECT DOSE ADMINISTERED [None]
  - MULTI-ORGAN FAILURE [None]
  - THROMBOCYTOPENIA [None]
  - VENOOCCLUSIVE DISEASE [None]
